FAERS Safety Report 9711381 (Version 1)
Quarter: 2013Q4

REPORT INFORMATION
  Report Type: Spontaneous
  Country: US (occurrence: US)
  Receive Date: 20131126
  Receipt Date: 20131126
  Transmission Date: 20140711
  Serious: No
  Sender: FDA-Public Use
  Company Number: US-BRISTOL-MYERS SQUIBB COMPANY-19225200

PATIENT
  Age: 72 Year
  Sex: Female

DRUGS (4)
  1. BYDUREON [Suspect]
  2. BYETTA [Suspect]
  3. OXYCONTIN [Suspect]
  4. VICTOZA [Suspect]

REACTIONS (2)
  - Nausea [Unknown]
  - Vomiting [Unknown]
